FAERS Safety Report 11772138 (Version 1)
Quarter: 2015Q4

REPORT INFORMATION
  Report Type: Spontaneous
  Country: US (occurrence: US)
  Receive Date: 20151124
  Receipt Date: 20151124
  Transmission Date: 20160304
  Serious: Yes (Hospitalization)
  Sender: FDA-Public Use
  Company Number: US-MYLANLABS-2015M1041337

PATIENT

DRUGS (1)
  1. CLOMIPRAMINE [Suspect]
     Active Substance: CLOMIPRAMINE
     Indication: PRODUCT USED FOR UNKNOWN INDICATION
     Route: 048

REACTIONS (4)
  - Overdose [Recovered/Resolved]
  - Electrocardiogram QT prolonged [Recovered/Resolved]
  - Generalised tonic-clonic seizure [Recovered/Resolved]
  - Sinus tachycardia [Recovered/Resolved]
